FAERS Safety Report 6036599-1 (Version None)
Quarter: 2009Q1

REPORT INFORMATION
  Report Type: 
  Country: None (occurrence: None)
  Receive Date: 20090114
  Receipt Date: 20090107
  Transmission Date: 20090719
  Serious: Yes (Hospitalization)
  Sender: FDA-Public Use
  Company Number: CA-AMGEN-US327224

PATIENT
  Age: 52 Year
  Sex: Female
  Weight: 81.7 kg

DRUGS (7)
  1. ENBREL [Suspect]
     Indication: RHEUMATOID ARTHRITIS
     Route: 058
     Dates: start: 20030801
  2. METHOTREXATE [Concomitant]
     Route: 048
     Dates: start: 20030101
  3. DICLOFENAC SODIUM [Concomitant]
     Dates: start: 20020101
  4. VITAMIN D [Concomitant]
  5. CALCIUM [Concomitant]
  6. FOLIC ACID [Concomitant]
     Route: 048
  7. TYLENOL W/ CODEINE NO. 3 [Concomitant]

REACTIONS (2)
  - KNEE ARTHROPLASTY [None]
  - POST PROCEDURAL INFECTION [None]
